FAERS Safety Report 21337279 (Version 2)
Quarter: 2022Q4

REPORT INFORMATION
  Report Type: Other
  Country: CO (occurrence: CO)
  Receive Date: 20220915
  Receipt Date: 20221014
  Transmission Date: 20230112
  Serious: Yes (Other)
  Sender: FDA-Public Use
  Company Number: CO-002147023-NVSC2022CO090497

PATIENT
  Age: 33 Year
  Sex: Male
  Weight: 95 kg

DRUGS (4)
  1. XOLAIR [Suspect]
     Active Substance: OMALIZUMAB
     Indication: Idiopathic urticaria
     Dosage: 300MG,MONTHLY STARTED 5 YEARS AGO
     Route: 058
  2. XOLAIR [Suspect]
     Active Substance: OMALIZUMAB
     Dosage: 300 MG, EVERY 3 MONTHS
     Route: 058
  3. XOLAIR [Suspect]
     Active Substance: OMALIZUMAB
     Dosage: 300MG,EVERY 60 DAYS
     Route: 058
  4. XOLAIR [Suspect]
     Active Substance: OMALIZUMAB
     Dosage: 300MG, EVERY 60 DAYS
     Route: 058
     Dates: start: 202201

REACTIONS (17)
  - Swelling face [Recovered/Resolved]
  - Muscular weakness [Unknown]
  - Hypotonia [Unknown]
  - Asthenia [Unknown]
  - Burning sensation [Unknown]
  - Histamine level increased [Unknown]
  - Facial discomfort [Unknown]
  - Spinal pain [Unknown]
  - Suspiciousness [Unknown]
  - Intervertebral disc disorder [Unknown]
  - Gait disturbance [Unknown]
  - Fear [Unknown]
  - Pruritus [Unknown]
  - Arthralgia [Unknown]
  - Joint swelling [Unknown]
  - Off label use [Unknown]
  - Inappropriate schedule of product administration [Unknown]

NARRATIVE: CASE EVENT DATE: 20220601
